FAERS Safety Report 18454981 (Version 2)
Quarter: 2020Q4

REPORT INFORMATION
  Report Type: Report from Study
  Country: JP (occurrence: JP)
  Receive Date: 20201102
  Receipt Date: 20201201
  Transmission Date: 20210114
  Serious: Yes (Death, Other)
  Sender: FDA-Public Use
  Company Number: JP-JNJFOC-20201049094

PATIENT

DRUGS (1)
  1. STELARA [Suspect]
     Active Substance: USTEKINUMAB
     Indication: CROHN^S DISEASE
     Dosage: DOSE UNKNOWN?USTEKINUMAB (GENETICAL RECOMBINATION): 45MG
     Route: 042

REACTIONS (5)
  - Disseminated intravascular coagulation [Unknown]
  - Arthralgia [Unknown]
  - Bronchopulmonary aspergillosis [Unknown]
  - Anal cancer [Fatal]
  - Intestinal perforation [Unknown]
